FAERS Safety Report 19494596 (Version 5)
Quarter: 2021Q3

REPORT INFORMATION
  Report Type: Spontaneous
  Country: CZ (occurrence: CZ)
  Receive Date: 20210706
  Receipt Date: 20210915
  Transmission Date: 20211014
  Serious: Yes (Death, Hospitalization, Other)
  Sender: FDA-Public Use
  Company Number: CZ-AUROBINDO-AUR-APL-2021-028644

PATIENT
  Age: 79 Year
  Sex: Female

DRUGS (20)
  1. BETAHISTINE [Concomitant]
     Active Substance: BETAHISTINE
     Indication: PRODUCT USED FOR UNKNOWN INDICATION
     Dosage: 16 MILLIGRAM, ONCE A DAY
     Route: 065
  2. BISOPROLOL [Concomitant]
     Active Substance: BISOPROLOL
     Indication: PRODUCT USED FOR UNKNOWN INDICATION
     Dosage: 5 MILLIGRAM, ONCE A DAY
     Route: 065
  3. PANTOPRAZOLE [Concomitant]
     Active Substance: PANTOPRAZOLE
     Indication: PRODUCT USED FOR UNKNOWN INDICATION
     Dosage: 40 MILLIGRAM, ONCE A DAY
     Route: 065
  4. LEVOTHYROXINE. [Concomitant]
     Active Substance: LEVOTHYROXINE
     Indication: PRODUCT USED FOR UNKNOWN INDICATION
     Dosage: 100 MICROGRAM, ONCE A DAY
     Route: 065
  5. NOREPINEPHRINE. [Concomitant]
     Active Substance: NOREPINEPHRINE
     Indication: RESPIRATORY FAILURE
     Dosage: UNKNOWN
     Route: 065
  6. DOBUTAMINE [Concomitant]
     Active Substance: DOBUTAMINE HYDROCHLORIDE
     Indication: CARDIOVASCULAR DISORDER
     Dosage: UNKNOWN
     Route: 065
  7. MEROPENEM. [Concomitant]
     Active Substance: MEROPENEM
     Indication: PNEUMONIA
     Dosage: UNKNOWN
     Route: 065
  8. ARGIPRESSIN [Concomitant]
     Active Substance: ARGIPRESSIN
     Indication: CARDIOVASCULAR DISORDER
     Dosage: UNKNOWN
     Route: 065
  9. TRANDOLAPRIL. [Concomitant]
     Active Substance: TRANDOLAPRIL
     Indication: PRODUCT USED FOR UNKNOWN INDICATION
     Dosage: 2 MILLIGRAM, ONCE A DAY
     Route: 065
  10. GLUCOSE [Concomitant]
     Active Substance: DEXTROSE
     Indication: HYPOGLYCAEMIA
     Dosage: UNKNOWN
     Route: 065
  11. ATORVASTATIN [Concomitant]
     Active Substance: ATORVASTATIN
     Indication: PRODUCT USED FOR UNKNOWN INDICATION
     Dosage: 80 MILLIGRAM, ONCE A DAY
     Route: 065
  12. ACETYLSALICYLIC ACID [Concomitant]
     Active Substance: ASPIRIN
     Indication: PRODUCT USED FOR UNKNOWN INDICATION
     Dosage: 100 MILLIGRAM, ONCE A DAY
     Route: 065
  13. FUROSEMIDE. [Concomitant]
     Active Substance: FUROSEMIDE
     Indication: PRODUCT USED FOR UNKNOWN INDICATION
     Dosage: 20 MILLIGRAM, ONCE A DAY
     Route: 065
  14. AMIODARONE [Concomitant]
     Active Substance: AMIODARONE
     Indication: TACHYCARDIA
     Dosage: UNKNOWN
     Route: 065
  15. CEFOTAXIME [Concomitant]
     Active Substance: CEFOTAXIME SODIUM
     Indication: PNEUMONIA
     Dosage: UNKNOWN
     Route: 065
  16. CLARITHROMYCIN. [Concomitant]
     Active Substance: CLARITHROMYCIN
     Indication: PNEUMONIA
     Dosage: UNKNOWN
     Route: 065
  17. GLICLAZIDE [Suspect]
     Active Substance: GLICLAZIDE
     Indication: PRODUCT USED FOR UNKNOWN INDICATION
     Dosage: 90 MILLIGRAM, ONCE A DAY, CONTROLLED RELEASE
     Route: 065
  18. HYDROCHLOROTHIAZIDE. [Concomitant]
     Active Substance: HYDROCHLOROTHIAZIDE
     Indication: PRODUCT USED FOR UNKNOWN INDICATION
     Dosage: 25 MILLIGRAM, ONCE A DAY
     Route: 065
  19. METFORMIN [Suspect]
     Active Substance: METFORMIN HYDROCHLORIDE
     Indication: TYPE 2 DIABETES MELLITUS
     Dosage: 3000 MILLIGRAM, ONCE A DAY
     Route: 048
  20. HYDROCORTISONE. [Concomitant]
     Active Substance: HYDROCORTISONE
     Indication: CIRCULATORY COLLAPSE
     Dosage: 25 MILLIGRAM, ONCE A DAY
     Route: 065

REACTIONS (12)
  - Contraindicated product administered [Not Recovered/Not Resolved]
  - Acute kidney injury [Fatal]
  - Gastroenteritis [Fatal]
  - Dehydration [Not Recovered/Not Resolved]
  - Cardiogenic shock [Fatal]
  - Vomiting [Not Recovered/Not Resolved]
  - Lactic acidosis [Fatal]
  - Septic shock [Fatal]
  - Hypoglycaemia [Fatal]
  - Metabolic acidosis [Unknown]
  - Diarrhoea [Not Recovered/Not Resolved]
  - Circulatory collapse [Fatal]
